FAERS Safety Report 6967597-9 (Version None)
Quarter: 2010Q3

REPORT INFORMATION
  Report Type: 
  Country: None (occurrence: None)
  Receive Date: 20100907
  Receipt Date: 20100823
  Transmission Date: 20110219
  Serious: Yes (Other)
  Sender: FDA-Public Use
  Company Number: US-RANBAXY-2010US-37541

PATIENT

DRUGS (6)
  1. PANTOPRAZOLE [Suspect]
     Indication: GASTROOESOPHAGEAL REFLUX DISEASE
     Dosage: 40 MG, BID
     Route: 048
     Dates: start: 20080101, end: 20100810
  2. SIMVASTATIN [Suspect]
     Indication: BLOOD CHOLESTEROL INCREASED
     Dosage: 80 MG, UNK
     Route: 048
     Dates: start: 20080101
  3. PROTONIX [Suspect]
     Indication: GASTROOESOPHAGEAL REFLUX DISEASE
     Dosage: 40 MG, BID
     Route: 048
     Dates: start: 19950101, end: 20100810
  4. LORAZEPAM [Concomitant]
     Indication: SLEEP DISORDER
     Dosage: UNK, UNK
     Route: 065
  5. LEXAPRO [Concomitant]
     Indication: DEPRESSION
     Dosage: UNK, UNK
     Route: 065
  6. BUSPIRONE HCL [Concomitant]
     Indication: RELAXATION THERAPY
     Dosage: UNK, UNK
     Route: 065

REACTIONS (5)
  - ANGINA PECTORIS [None]
  - CORONARY ARTERY OCCLUSION [None]
  - DRUG INEFFECTIVE [None]
  - MYOCARDIAL INFARCTION [None]
  - PAIN IN EXTREMITY [None]
